FAERS Safety Report 8844883 (Version 1)
Quarter: 2012Q4

REPORT INFORMATION
  Report Type: Spontaneous
  Country: US (occurrence: None)
  Receive Date: 20121002
  Receipt Date: 20121002
  Transmission Date: 20130627
  Serious: Yes (Death)
  Sender: FDA-Public Use
  Company Number: RB-41402-212

PATIENT
  Sex: Male

DRUGS (7)
  1. SUBOXONE [Suspect]
     Indication: DRUG DEPENDENCE
     Route: 060
     Dates: start: 201009, end: 201105
  2. SUBOXONE [Suspect]
     Indication: DRUG DEPENDENCE
     Route: 060
     Dates: start: 201105
  3. HEROIN [Suspect]
     Indication: DRUG DEPENDENCE
     Route: 042
     Dates: start: 201206, end: 201206
  4. HUMULIN [Concomitant]
  5. KLONOPIN [Concomitant]
  6. LYRICA [Concomitant]
  7. LISINOPRIL [Concomitant]

REACTIONS (1)
  - Overdose [None]
